FAERS Safety Report 17792401 (Version 1)
Quarter: 2020Q2

REPORT INFORMATION
  Report Type: Spontaneous
  Country: FR (occurrence: FR)
  Receive Date: 20200515
  Receipt Date: 20200515
  Transmission Date: 20200714
  Serious: Yes (Other)
  Sender: FDA-Public Use
  Company Number: FR-TEVA-2020-FR-1234410

PATIENT
  Age: 79 Year
  Sex: Male

DRUGS (17)
  1. ACETYLSALICYLATE DE DL-LYSINE [Concomitant]
     Active Substance: ASPIRIN DL-LYSINE
     Indication: CARDIOVASCULAR EVENT PROPHYLAXIS
     Dosage: 100 MILLGRAM
     Route: 048
  2. IMUREL 50 MG, COMPRIM? S?CABLE [Concomitant]
     Active Substance: AZATHIOPRINE
     Indication: MUSCULAR WEAKNESS
     Dosage: 150 MILLIGRAM
     Route: 048
     Dates: start: 202003
  3. LOVENOX [Concomitant]
     Active Substance: ENOXAPARIN SODIUM
     Indication: THROMBOSIS PROPHYLAXIS
     Dosage: 1 DOSAGEFORM
     Route: 058
     Dates: start: 20200206
  4. INSULINE [Concomitant]
     Active Substance: INSULIN NOS
     Indication: PRODUCT USED FOR UNKNOWN INDICATION
     Dosage: 50 IU
     Route: 042
     Dates: start: 20200325, end: 20200403
  5. AMLOR 5 MG, G?LULE [Concomitant]
     Active Substance: AMLODIPINE BESYLATE
     Indication: ANGINA PECTORIS
     Dosage: 10 MILLIGRAM
     Route: 048
  6. SOLUPRED 20 MG, COMPRIM? EFFERVESCENT [Concomitant]
     Active Substance: PREDNISOLONE SODIUM METAZOATE
     Indication: MUSCULAR WEAKNESS
     Dosage: 60 MILLIGRAM
     Route: 048
  7. VALSARTAN. [Concomitant]
     Active Substance: VALSARTAN
     Indication: HYPERTENSION
     Dosage: 80 MILLIGRAM
     Route: 048
  8. METOCLOPRAMIDE. [Concomitant]
     Active Substance: METOCLOPRAMIDE
     Indication: IMPAIRED GASTRIC EMPTYING
     Dosage: IF NECESSARY?UNIT DOSE :10 MILLIGRAM
     Route: 042
     Dates: start: 20200331, end: 20200402
  9. SPECIAFOLDINE 5 MG, COMPRIM? [Concomitant]
     Active Substance: FOLIC ACID
     Indication: PRODUCT USED FOR UNKNOWN INDICATION
     Dosage: 5 MILLIGRAM
     Route: 048
     Dates: start: 20200311
  10. DUPHALAC [Concomitant]
     Active Substance: LACTULOSE
     Indication: PRODUCT USED FOR UNKNOWN INDICATION
     Dosage: 2 DOSAGEFORM
     Route: 048
     Dates: start: 20200327, end: 20200402
  11. FORTUM [Concomitant]
     Active Substance: CEFTAZIDIME
     Indication: PNEUMONIA
     Dosage: 2 GRAM
     Route: 042
     Dates: start: 20200317, end: 20200401
  12. EUPANTOL [Concomitant]
     Active Substance: PANTOPRAZOLE SODIUM
     Indication: IMPAIRED GASTRIC EMPTYING
     Dosage: 40 MILLIGRAM
     Route: 042
     Dates: start: 20200330, end: 20200402
  13. BACTRIM [Concomitant]
     Active Substance: SULFAMETHOXAZOLE\TRIMETHOPRIM
     Indication: PROPHYLAXIS
     Dosage: MONDAY, WEDNESDAY AND FRIDAY?UNIT DOSE :800 MILLIGRAM
     Route: 048
     Dates: start: 20200303
  14. CONTRAMAL 50 MG, G?LULE [Concomitant]
     Active Substance: TRAMADOL HYDROCHLORIDE
     Indication: PRODUCT USED FOR UNKNOWN INDICATION
     Dosage: 50 MILLIGRAM
     Route: 048
     Dates: start: 20200330, end: 20200402
  15. VANCOMYCINE [Suspect]
     Active Substance: VANCOMYCIN
     Indication: PNEUMONIA
     Dosage: 1800 MILLIGRAM
     Route: 042
     Dates: start: 20200328, end: 20200401
  16. SCOPODERM TTS 1 MG/72 HEURES, DISPOSITIF TRANSDERMIQUE [Concomitant]
     Active Substance: SCOPOLAMINE
     Indication: SALIVARY HYPERSECRETION
     Dosage: 1 DOSAGEFORN
     Route: 003
     Dates: start: 20200311
  17. URAPIDIL [Concomitant]
     Active Substance: URAPIDIL
     Indication: HYPERTENSION
     Dosage: 30 MILLIGRAM
     Route: 048

REACTIONS (1)
  - Acute kidney injury [Not Recovered/Not Resolved]

NARRATIVE: CASE EVENT DATE: 20200401
